FAERS Safety Report 21511544 (Version 1)
Quarter: 2022Q4

REPORT INFORMATION
  Report Type: Spontaneous
  Country: US (occurrence: US)
  Receive Date: 20221027
  Receipt Date: 20221027
  Transmission Date: 20230112
  Serious: Yes (Other)
  Sender: FDA-Public Use
  Company Number: US-JNJFOC-20221036138

PATIENT
  Sex: Female
  Weight: 91.254 kg

DRUGS (2)
  1. STELARA [Suspect]
     Active Substance: USTEKINUMAB
     Indication: Product used for unknown indication
     Route: 058
     Dates: start: 2020, end: 202204
  2. VITAMINS NOS [Concomitant]
     Active Substance: VITAMINS
     Indication: Pregnancy
     Route: 048

REACTIONS (2)
  - Abnormal cord insertion [Not Recovered/Not Resolved]
  - Exposure during pregnancy [Unknown]

NARRATIVE: CASE EVENT DATE: 20220824
